FAERS Safety Report 9851919 (Version 2)
Quarter: 2014Q2

REPORT INFORMATION
  Report Type: Spontaneous
  Country: LT (occurrence: LT)
  Receive Date: 20140129
  Receipt Date: 20140408
  Transmission Date: 20141212
  Serious: Yes (Other)
  Sender: FDA-Public Use
  Company Number: LT-RANBAXY-2014RR-77478

PATIENT
  Age: 18 Year
  Sex: Female

DRUGS (4)
  1. CEFUROXIME [Suspect]
     Indication: PROPHYLAXIS
     Dosage: UNK
     Route: 065
  2. MEROPENEM [Suspect]
     Indication: SEPSIS
     Dosage: UNK
     Route: 065
  3. VANCOMYCIN [Suspect]
     Indication: SEPSIS
     Dosage: UNK
     Route: 065
  4. HEPARIN [Concomitant]
     Indication: EXTRACORPOREAL MEMBRANE OXYGENATION
     Dosage: UNK
     Route: 065

REACTIONS (3)
  - Drug ineffective [Recovering/Resolving]
  - Exposure during pregnancy [Unknown]
  - Premature labour [Unknown]
